FAERS Safety Report 17682115 (Version 5)
Quarter: 2020Q3

REPORT INFORMATION
  Report Type: Spontaneous
  Country: US (occurrence: US)
  Receive Date: 20200418
  Receipt Date: 20200921
  Transmission Date: 20201102
  Serious: Yes (Other)
  Sender: FDA-Public Use
  Company Number: US-AUROBINDO-AUR-APL-2020-019002

PATIENT
  Age: 45 Year
  Sex: Female
  Weight: 81.63 kg

DRUGS (3)
  1. IBUPROFEN. [Concomitant]
     Active Substance: IBUPROFEN
     Indication: PRODUCT USED FOR UNKNOWN INDICATION
     Dosage: UNK, AS NEEDED
     Route: 065
  2. METOPROLOL TARTRATE FILM COATED TABLETS USP 25 MG [Suspect]
     Active Substance: METOPROLOL TARTRATE
     Indication: BLOOD PRESSURE MEASUREMENT
  3. METOPROLOL TARTRATE FILM COATED TABLETS USP 25 MG [Suspect]
     Active Substance: METOPROLOL TARTRATE
     Indication: PALPITATIONS
     Dosage: 25 MILLIGRAM, TWO TIMES A DAY (ONE IN THE MORNING AND ONE IN THE NIGHT)
     Route: 048
     Dates: start: 20200310

REACTIONS (5)
  - Infection [Not Recovered/Not Resolved]
  - Treatment noncompliance [Unknown]
  - Pneumonia [Not Recovered/Not Resolved]
  - Drug ineffective [Unknown]
  - Depressed mood [Not Recovered/Not Resolved]
